FAERS Safety Report 19886738 (Version 1)
Quarter: 2021Q3

REPORT INFORMATION
  Report Type: Report from Study
  Country: US (occurrence: US)
  Receive Date: 20210928
  Receipt Date: 20210928
  Transmission Date: 20211014
  Serious: Yes (Death)
  Sender: FDA-Public Use
  Company Number: US-TAIHO ONCOLOGY  INC-EU-2021-03041

PATIENT
  Age: 80 Year
  Sex: Female
  Weight: 56.75 kg

DRUGS (16)
  1. BENADRYL [Concomitant]
     Active Substance: DIPHENHYDRAMINE HYDROCHLORIDE
  2. OCUVITE?LUTEIN [Concomitant]
  3. ALOXI [Concomitant]
     Active Substance: PALONOSETRON HYDROCHLORIDE
  4. DIGOXIN. [Concomitant]
     Active Substance: DIGOXIN
  5. FLUOROURACIL. [Concomitant]
     Active Substance: FLUOROURACIL
  6. AVASTIN [Concomitant]
     Active Substance: BEVACIZUMAB
  7. ELIQUIS [Concomitant]
     Active Substance: APIXABAN
  8. CARDIZEM CD [Concomitant]
     Active Substance: DILTIAZEM HYDROCHLORIDE
  9. CAMPTOSAR [Concomitant]
     Active Substance: IRINOTECAN HYDROCHLORIDE
  10. ONDANSETRON [Concomitant]
     Active Substance: ONDANSETRON
  11. LONSURF [Suspect]
     Active Substance: TIPIRACIL HYDROCHLORIDE\TRIFLURIDINE
     Indication: COLON CANCER
     Dosage: CYCLE UNKNOWN
     Route: 048
  12. DEXAMETHASONE. [Concomitant]
     Active Substance: DEXAMETHASONE
  13. PHENERGAN [Concomitant]
     Active Substance: PROMETHAZINE HYDROCHLORIDE
  14. ZOFRAN [Concomitant]
     Active Substance: ONDANSETRON HYDROCHLORIDE
  15. LEUCOVORIN. [Concomitant]
     Active Substance: LEUCOVORIN
  16. CCA ATROPINE [Concomitant]

REACTIONS (1)
  - Death [Fatal]
